FAERS Safety Report 9199305 (Version 1)
Quarter: 2013Q1

REPORT INFORMATION
  Report Type: Spontaneous
  Country: US (occurrence: None)
  Receive Date: 20130325
  Receipt Date: 20130325
  Transmission Date: 20140127
  Serious: Yes (Other)
  Sender: FDA-Public Use
  Company Number: 2013US-004596

PATIENT
  Age: 79 Year
  Sex: Male
  Weight: 79.5 kg

DRUGS (9)
  1. OMONTYS (PEGINESATIDE) SOLUTION FOR INJECTION [Suspect]
     Indication: NEPHROGENIC ANAEMIA
     Route: 042
     Dates: start: 20130214, end: 20130214
  2. NORVASC (AMLODIPINE BESILATE) [Concomitant]
  3. ASPIRIN (ACETYLSALICYLIC ACID) [Concomitant]
  4. RENALVITE (ASCORBIC ACID, BIOTIN, CALCIUM PANTOTHENATE, CYANOCOBALAMIN, FERROUS FUMARATE, FOLIC ACID, NICOTINAMIDE, PYRIDOXINE HYDROCHLORIDE, RIBOFLAVIN, THIAMINE HYDROCHLORIDE) [Concomitant]
  5. COREG (CARVEDILOL) [Concomitant]
  6. CELEXA (CITALOPRAM HYDROBROMIDE) [Concomitant]
  7. VENOFER [Concomitant]
  8. EPOGEN (EPOETIN ALFA) [Concomitant]
  9. CALCITRIOL (CALCITRIOL) [Concomitant]

REACTIONS (9)
  - Anaphylactic reaction [None]
  - Sneezing [None]
  - Nasal discomfort [None]
  - Breath sounds abnormal [None]
  - Pallor [None]
  - Apnoea [None]
  - Burning sensation [None]
  - Pruritus [None]
  - Ocular hyperaemia [None]
